FAERS Safety Report 11423836 (Version 1)
Quarter: 2015Q3

REPORT INFORMATION
  Report Type: Spontaneous
  Country: US (occurrence: US)
  Receive Date: 20150827
  Receipt Date: 20150827
  Transmission Date: 20151125
  Serious: No
  Sender: FDA-Public Use
  Company Number: US-JNJFOC-20150601256

PATIENT
  Sex: Female

DRUGS (3)
  1. PRESCRIPTION MEDICATION [Concomitant]
     Route: 065
  2. MOTRIN IB [Suspect]
     Active Substance: IBUPROFEN
     Route: 065
  3. MOTRIN IB [Suspect]
     Active Substance: IBUPROFEN
     Indication: PAIN
     Route: 065

REACTIONS (1)
  - Intentional product misuse [Unknown]
